FAERS Safety Report 10915088 (Version 1)
Quarter: 2015Q1

REPORT INFORMATION
  Report Type: Spontaneous
  Country: US (occurrence: US)
  Receive Date: 20150315
  Receipt Date: 20150315
  Transmission Date: 20150721
  Serious: Yes (Other)
  Sender: FDA-Public Use
  Company Number: US-ELI_LILLY_AND_COMPANY-US201503001022

PATIENT
  Sex: Female

DRUGS (2)
  1. PROZAC [Suspect]
     Active Substance: FLUOXETINE HYDROCHLORIDE
     Indication: PRODUCT USED FOR UNKNOWN INDICATION
     Dosage: 1 DF, UNKNOWN
     Route: 065
     Dates: end: 20010403
  2. PRENAT                             /00023601/ [Concomitant]

REACTIONS (4)
  - Exposure during pregnancy [Recovered/Resolved]
  - Retained placenta or membranes [Recovered/Resolved]
  - Gestational diabetes [Unknown]
  - Abortion threatened [Recovered/Resolved]
